FAERS Safety Report 5095605-1 (Version None)
Quarter: 2006Q3

REPORT INFORMATION
  Report Type: 
  Country: None (occurrence: None)
  Receive Date: 20060901
  Receipt Date: 20060809
  Transmission Date: 20061208
  Serious: Yes (Hospitalization, Other)
  Sender: FDA-Public Use
  Company Number: CN-GILEAD-2006-0010006

PATIENT
  Age: 65 Year
  Sex: Male

DRUGS (6)
  1. HEPSERA [Suspect]
     Indication: HEPATIC CIRRHOSIS
     Route: 048
     Dates: start: 20060610, end: 20060625
  2. HEPSERA [Suspect]
     Indication: HEPATITIS B
  3. HEPTODIN [Suspect]
     Indication: HEPATITIS B
     Route: 048
     Dates: start: 20050901, end: 20060301
  4. HEPTODIN [Suspect]
     Indication: HEPATIC CIRRHOSIS
  5. YANGXIN PIAN [Concomitant]
     Dates: start: 19950101
  6. NIFUDA [Concomitant]
     Dates: start: 20000101

REACTIONS (6)
  - ASTHENIA [None]
  - CHROMATURIA [None]
  - CONJUNCTIVAL HAEMORRHAGE [None]
  - COUGH [None]
  - DYSPNOEA [None]
  - HEPATITIS [None]
